FAERS Safety Report 12616227 (Version 2)
Quarter: 2016Q3

REPORT INFORMATION
  Report Type: Spontaneous
  Country: US (occurrence: US)
  Receive Date: 20160802
  Receipt Date: 20160802
  Transmission Date: 20161109
  Serious: Yes (Life-Threatening, Hospitalization)
  Sender: FDA-Public Use
  Company Number: US-SA-2016SA134598

PATIENT
  Age: 21 Year
  Sex: Male

DRUGS (13)
  1. RISPERIDONE. [Interacting]
     Active Substance: RISPERIDONE
     Route: 065
  2. OXCARBAZEPINE. [Concomitant]
     Active Substance: OXCARBAZEPINE
     Route: 065
  3. ARIPIPRAZOLE. [Concomitant]
     Active Substance: ARIPIPRAZOLE
     Route: 030
  4. HALOPERIDOL. [Interacting]
     Active Substance: HALOPERIDOL
     Indication: AGGRESSION
     Route: 065
  5. CHLORPROMAZINE. [Interacting]
     Active Substance: CHLORPROMAZINE
     Route: 065
  6. DIPHENHYDRAMINE. [Suspect]
     Active Substance: DIPHENHYDRAMINE
     Indication: AGGRESSION
     Route: 065
  7. LORAZEPAM. [Interacting]
     Active Substance: LORAZEPAM
     Indication: AGGRESSION
     Route: 065
  8. CLOZAPINE. [Interacting]
     Active Substance: CLOZAPINE
     Indication: SCHIZOPHRENIA
     Dosage: INCREASED TO 175 MG
     Route: 065
     Dates: start: 20150106, end: 201601
  9. CLOZAPINE. [Interacting]
     Active Substance: CLOZAPINE
     Indication: SCHIZOPHRENIA
     Dosage: INCREASED TO 175 MG
     Route: 065
     Dates: start: 20150108
  10. RISPERIDONE. [Interacting]
     Active Substance: RISPERIDONE
     Route: 065
  11. CLOZAPINE. [Interacting]
     Active Substance: CLOZAPINE
     Indication: SCHIZOPHRENIA
     Dosage: RAPID TITRATION
     Route: 065
     Dates: start: 20141230
  12. DIVALPROEX SODIUM. [Interacting]
     Active Substance: DIVALPROEX SODIUM
     Route: 065
     Dates: start: 20150106
  13. DULOXETINE. [Concomitant]
     Active Substance: DULOXETINE
     Route: 065

REACTIONS (10)
  - Blood creatine phosphokinase increased [Recovered/Resolved]
  - Toxicity to various agents [Recovered/Resolved]
  - Lethargy [Recovered/Resolved]
  - Pyrexia [Recovered/Resolved]
  - Drug interaction [Recovered/Resolved]
  - Neuroleptic malignant syndrome [Recovered/Resolved]
  - Disorientation [Recovered/Resolved]
  - Medication error [Recovered/Resolved]
  - Muscle rigidity [Recovered/Resolved]
  - Heart rate increased [Recovered/Resolved]
